FAERS Safety Report 4684740-5 (Version None)
Quarter: 2005Q2

REPORT INFORMATION
  Report Type: 
  Country: None (occurrence: None)
  Receive Date: 20050603
  Receipt Date: 20050524
  Transmission Date: 20051028
  Serious: Yes (Death, Hospitalization)
  Sender: FDA-Public Use
  Company Number: 2005079081

PATIENT
  Age: 49 Year
  Sex: Female

DRUGS (1)
  1. PHENYTOIN [Suspect]
     Indication: EPILEPSY

REACTIONS (11)
  - ABDOMINAL SEPSIS [None]
  - COMA [None]
  - DISEASE RECURRENCE [None]
  - EPILEPSY [None]
  - HEPATIC FAILURE [None]
  - HYPOALBUMINAEMIA [None]
  - INTESTINAL INFARCTION [None]
  - LACTIC ACIDOSIS [None]
  - METABOLIC ENCEPHALOPATHY [None]
  - MYDRIASIS [None]
  - SHOCK [None]
